FAERS Safety Report 9998905 (Version 1)
Quarter: 2014Q1

REPORT INFORMATION
  Report Type: Spontaneous
  Country: US (occurrence: US)
  Receive Date: 20140312
  Receipt Date: 20140312
  Transmission Date: 20141002
  Serious: No
  Sender: FDA-Public Use
  Company Number: US-009507513-1403USA002437

PATIENT
  Age: 28 Year
  Sex: Female
  Weight: 53.61 kg

DRUGS (1)
  1. NUVARING [Suspect]

REACTIONS (1)
  - Inappropriate schedule of drug administration [Unknown]
